FAERS Safety Report 8618687-6 (Version None)
Quarter: 2012Q3

REPORT INFORMATION
  Report Type: 
  Country: None (occurrence: None)
  Receive Date: 20120824
  Receipt Date: 20120815
  Transmission Date: 20120928
  Serious: Yes (Hospitalization)
  Sender: FDA-Public Use
  Company Number: US-SANOFI-AVENTIS-2012SA058906

PATIENT
  Age: 60 Year
  Sex: Female

DRUGS (3)
  1. LANTUS [Suspect]
     Indication: TYPE 2 DIABETES MELLITUS
     Dosage: 15 - 18 UNITS TWICE DAILY.
     Route: 058
     Dates: start: 20120701
  2. SOLOSTAR [Suspect]
     Dates: start: 20120701
  3. NOVOLOG [Suspect]
     Route: 065
     Dates: end: 20120101

REACTIONS (2)
  - CEREBROVASCULAR ACCIDENT [None]
  - BLOOD GLUCOSE INCREASED [None]
